FAERS Safety Report 8125218-6 (Version None)
Quarter: 2012Q1

REPORT INFORMATION
  Report Type: 
  Country: None (occurrence: None)
  Receive Date: 20120209
  Receipt Date: 20120206
  Transmission Date: 20120608
  Serious: Yes (Disabling, Other)
  Sender: FDA-Public Use
  Company Number: US-PFIZER INC-2012032948

PATIENT
  Sex: Female
  Weight: 70.748 kg

DRUGS (5)
  1. LYRICA [Suspect]
     Dosage: 375MG, DAILY
     Dates: start: 20090101
  2. LYRICA [Suspect]
     Dosage: 25 MG, 3X/DAY
  3. LYRICA [Suspect]
     Dosage: 50 MG, UNK
  4. LYRICA [Suspect]
     Indication: NEUROPATHY PERIPHERAL
     Dosage: 25 MG, 2X/DAY
  5. ACETYLSALICYLIC ACID SRT [Suspect]
     Indication: CARDIOVASCULAR EVENT PROPHYLAXIS
     Dosage: UNK, DAILY

REACTIONS (8)
  - GAIT DISTURBANCE [None]
  - ARTHRITIS [None]
  - MUSCULOSKELETAL STIFFNESS [None]
  - HYPOAESTHESIA [None]
  - GOUT [None]
  - PAIN IN EXTREMITY [None]
  - HYPOAESTHESIA ORAL [None]
  - MUSCLE SPASMS [None]
